FAERS Safety Report 17919841 (Version 2)
Quarter: 2020Q4

REPORT INFORMATION
  Report Type: Spontaneous
  Country: JP (occurrence: JP)
  Receive Date: 20200619
  Receipt Date: 20201214
  Transmission Date: 20210113
  Serious: Yes (Hospitalization, Other)
  Sender: FDA-Public Use
  Company Number: JP-BAXTER-2020BAX010977

PATIENT
  Age: 62 Year
  Sex: Male
  Weight: 83.7 kg

DRUGS (23)
  1. DROLEPTAN [Suspect]
     Active Substance: DROPERIDOL
     Dosage: CONTINUOUS ADMINISTRATION
     Route: 008
     Dates: start: 20200525, end: 20200525
  2. EPHEDRINE. [Suspect]
     Active Substance: EPHEDRINE
     Indication: PROCEDURAL HYPOTENSION
     Route: 042
     Dates: start: 20200525, end: 20200525
  3. PHYSIO 140 [Suspect]
     Active Substance: CALCIUM GLUCONATE\DEXTROSE\MAGNESIUM CHLORIDE\POTASSIUM CHLORIDE\SODIUM ACETATE\SODIUM CHLORIDE\TRISODIUM CITRATE DIHYDRATE
     Indication: MEDICATION DILUTION
     Route: 042
     Dates: start: 20200525, end: 20200525
  4. EPHEDRINE. [Suspect]
     Active Substance: EPHEDRINE
     Route: 042
     Dates: start: 20200525, end: 20200525
  5. MEPIVACAINE [Concomitant]
     Active Substance: MEPIVACAINE HYDROCHLORIDE
     Indication: PRODUCT USED FOR UNKNOWN INDICATION
     Route: 065
  6. SUPRANE [Suspect]
     Active Substance: DESFLURANE
     Indication: ANAESTHESIA
  7. ANAPEINE [Suspect]
     Active Substance: ROPIVACAINE HYDROCHLORIDE
     Indication: POSTOPERATIVE ANALGESIA
  8. SUPRANE [Suspect]
     Active Substance: DESFLURANE
     Indication: GENERAL ANAESTHESIA
     Route: 065
  9. SUPRANE [Suspect]
     Active Substance: DESFLURANE
     Indication: MAINTENANCE OF ANAESTHESIA
     Route: 055
     Dates: start: 20200525, end: 20200525
  10. ROCURONIUM [Suspect]
     Active Substance: ROCURONIUM BROMIDE
     Indication: MUSCLE RELAXANT THERAPY
     Dosage: 50/30/20 EACH 3 DOSES
     Route: 042
     Dates: start: 20200525, end: 20200525
  11. ONDANSETRON [Suspect]
     Active Substance: ONDANSETRON
     Indication: ANTIEMETIC SUPPORTIVE CARE
     Route: 042
     Dates: start: 20200525, end: 20200525
  12. FENTANYL. [Suspect]
     Active Substance: FENTANYL
     Indication: INDUCTION AND MAINTENANCE OF ANAESTHESIA
     Route: 042
     Dates: start: 20200525, end: 20200525
  13. ANAPEINE [Suspect]
     Active Substance: ROPIVACAINE HYDROCHLORIDE
     Indication: PAIN MANAGEMENT
     Dosage: 5 DOSES?CONTINUOUS ADMINISTRATION FROM 16:50 HOURS
     Route: 008
     Dates: start: 20200525, end: 20200525
  14. PROPOFOL. [Suspect]
     Active Substance: PROPOFOL
     Indication: INDUCTION OF ANAESTHESIA
     Dosage: 140/30/30 EACH 3 DOSES
     Route: 042
     Dates: start: 20200525, end: 20200525
  15. SEVOFLURANE. [Suspect]
     Active Substance: SEVOFLURANE
     Indication: ANAESTHESIA
     Route: 065
  16. FENTANYL. [Suspect]
     Active Substance: FENTANYL
     Route: 042
     Dates: start: 20200525, end: 20200525
  17. DROLEPTAN [Suspect]
     Active Substance: DROPERIDOL
     Indication: PROCEDURAL VOMITING
     Route: 042
  18. DROLEPTAN [Suspect]
     Active Substance: DROPERIDOL
     Indication: PRODUCT USED FOR UNKNOWN INDICATION
     Route: 042
     Dates: start: 20200525, end: 20200525
  19. REMIFENTANIL [Suspect]
     Active Substance: REMIFENTANIL
     Indication: INDUCTION AND MAINTENANCE OF ANAESTHESIA
     Route: 042
     Dates: start: 20200525, end: 20200525
  20. CEFMETAZOLE [Suspect]
     Active Substance: CEFMETAZOLE
     Indication: INFECTION PROPHYLAXIS
     Route: 042
     Dates: start: 20200525, end: 20200525
  21. DROPERIDOL. [Concomitant]
     Active Substance: DROPERIDOL
     Indication: PRODUCT USED FOR UNKNOWN INDICATION
     Route: 065
  22. ROCURONIUM [Suspect]
     Active Substance: ROCURONIUM BROMIDE
     Indication: INDUCTION AND MAINTENANCE OF ANAESTHESIA
  23. NEO SYNESIN [Suspect]
     Active Substance: PHENYLEPHRINE HYDROCHLORIDE
     Indication: PROCEDURAL HYPOTENSION
     Dosage: 3 DOSES
     Route: 042
     Dates: start: 20200525, end: 20200525

REACTIONS (3)
  - Neuroleptic malignant syndrome [Unknown]
  - Post procedural complication [Recovering/Resolving]
  - Hyperthermia malignant [Recovering/Resolving]

NARRATIVE: CASE EVENT DATE: 20200525
